FAERS Safety Report 5169112-1 (Version None)
Quarter: 2006Q4

REPORT INFORMATION
  Report Type: 
  Country: None (occurrence: None)
  Receive Date: 20061204
  Receipt Date: 20061122
  Transmission Date: 20070319
  Serious: Yes (Other)
  Sender: FDA-Public Use
  Company Number: 2006145043

PATIENT
  Age: 82 Year
  Sex: Male

DRUGS (8)
  1. LYRICA [Suspect]
     Indication: BACK PAIN
     Dosage: 2 IN 1 D
     Dates: start: 20060101
  2. LYRICA [Suspect]
     Indication: PAIN IN EXTREMITY
     Dosage: 2 IN 1 D
     Dates: start: 20060101
  3. LOPRESSOR [Suspect]
     Indication: CARDIAC DISORDER
     Dosage: 100 MG (100 MG, 1 IN 1 D)
  4. LANTUS [Concomitant]
  5. AVANDIA [Concomitant]
  6. CORGARD [Concomitant]
  7. ASPIRIN [Concomitant]
  8. SYNTHROID [Concomitant]

REACTIONS (8)
  - BLOOD GLUCOSE INCREASED [None]
  - BLOOD PRESSURE DECREASED [None]
  - CONFUSIONAL STATE [None]
  - DIZZINESS [None]
  - INCORRECT DOSE ADMINISTERED [None]
  - ORTHOSTATIC HYPOTENSION [None]
  - SOMNOLENCE [None]
  - WRONG DRUG ADMINISTERED [None]
